FAERS Safety Report 9009107 (Version 2)
Quarter: 2013Q2

REPORT INFORMATION
  Report Type: Spontaneous
  Country: US (occurrence: US)
  Receive Date: 20130111
  Receipt Date: 20130412
  Transmission Date: 20140414
  Serious: No
  Sender: FDA-Public Use
  Company Number: US-GLAXOSMITHKLINE-A0996690A

PATIENT
  Sex: Male

DRUGS (2)
  1. JALYN [Suspect]
     Dosage: 1CAP PER DAY
     Route: 048
  2. THYROID MEDICATION [Concomitant]

REACTIONS (1)
  - Drug administration error [Unknown]
